FAERS Safety Report 6969674-5 (Version None)
Quarter: 2010Q3

REPORT INFORMATION
  Report Type: 
  Country: None (occurrence: None)
  Receive Date: 20100908
  Receipt Date: 20100830
  Transmission Date: 20110219
  Serious: Yes (Hospitalization)
  Sender: FDA-Public Use
  Company Number: US-US-EMD SERONO, INC.-7016265

PATIENT
  Sex: Female
  Weight: 56 kg

DRUGS (3)
  1. REBIF [Suspect]
     Indication: MULTIPLE SCLEROSIS
     Route: 058
     Dates: start: 20030106, end: 20081001
  2. VITAMINS [Concomitant]
  3. HORMONES [Concomitant]

REACTIONS (2)
  - ARTHROPATHY [None]
  - STAPHYLOCOCCAL INFECTION [None]
